FAERS Safety Report 14427871 (Version 1)
Quarter: 2018Q1

REPORT INFORMATION
  Report Type: Spontaneous
  Country: US (occurrence: US)
  Receive Date: 20180123
  Receipt Date: 20180123
  Transmission Date: 20180509
  Serious: No
  Sender: FDA-Public Use
  Company Number: US-009507513-1801USA000611

PATIENT
  Age: 73 Year
  Sex: Male

DRUGS (4)
  1. ASPIRIN. [Concomitant]
     Active Substance: ASPIRIN
     Dosage: 325 MG, QD
     Route: 048
  2. BELSOMRA [Suspect]
     Active Substance: SUVOREXANT
     Indication: INSOMNIA
     Dosage: 20 MG, QPM
     Route: 048
     Dates: start: 20171225
  3. INDERAL [Concomitant]
     Active Substance: PROPRANOLOL HYDROCHLORIDE
     Dosage: 40 MG, QD
  4. BELSOMRA [Suspect]
     Active Substance: SUVOREXANT
     Indication: INSOMNIA
     Dosage: 15 MG, QPM
     Route: 048
     Dates: start: 20171222, end: 20171224

REACTIONS (3)
  - Drug ineffective [Not Recovered/Not Resolved]
  - Sleep disorder [Unknown]
  - Night sweats [Unknown]

NARRATIVE: CASE EVENT DATE: 20171222
